FAERS Safety Report 8292367-1 (Version None)
Quarter: 2012Q2

REPORT INFORMATION
  Report Type: 
  Country: None (occurrence: None)
  Receive Date: 20120417
  Receipt Date: 20120402
  Transmission Date: 20120825
  Serious: Yes (Other)
  Sender: FDA-Public Use
  Company Number: CHPA2012US002703

PATIENT
  Age: 59 Year
  Sex: Female

DRUGS (2)
  1. GAS-X PREVENTION [Suspect]
     Dosage: UNK, UNK
     Route: 048
  2. EXCEDRIN (MIGRAINE) [Suspect]
     Indication: MIGRAINE
     Dosage: 2 DF, UNK
     Route: 048
     Dates: start: 20110101

REACTIONS (5)
  - GASTRIC DISORDER [None]
  - ABDOMINAL PAIN UPPER [None]
  - DIZZINESS [None]
  - FATIGUE [None]
  - RENAL CYST [None]
